FAERS Safety Report 9910193 (Version 1)
Quarter: 2014Q1

REPORT INFORMATION
  Report Type: Spontaneous
  Country: FR (occurrence: FR)
  Receive Date: 20140219
  Receipt Date: 20140219
  Transmission Date: 20141002
  Serious: Yes (Other)
  Sender: FDA-Public Use
  Company Number: FR-009507513-1402FRA004774

PATIENT
  Sex: Male
  Weight: 75 kg

DRUGS (1)
  1. NOROXINE [Suspect]
     Indication: URINARY TRACT INFECTION
     Dosage: 2 DF, QD
     Route: 048
     Dates: start: 2014, end: 2014

REACTIONS (2)
  - Surgery [Unknown]
  - Retinal detachment [Unknown]
